FAERS Safety Report 10026763 (Version 2)
Quarter: 2014Q2

REPORT INFORMATION
  Report Type: Spontaneous
  Country: GB (occurrence: None)
  Receive Date: 20140318
  Receipt Date: 20140414
  Transmission Date: 20141212
  Serious: Yes (Hospitalization)
  Sender: FDA-Public Use
  Company Number: 2233033

PATIENT
  Age: 57 Year
  Sex: Male
  Weight: 113 kg

DRUGS (7)
  1. EPIRUBICIN HYDROCHLORIDE [Suspect]
     Indication: GASTRIC CANCER
     Route: 042
     Dates: start: 20130508
  2. CISPLATIN [Suspect]
     Indication: GASTRIC CANCER
     Route: 042
     Dates: start: 20130508
  3. BEVACIZUMAB [Suspect]
     Indication: GASTRIC CANCER
     Route: 042
     Dates: start: 20130508
  4. CAPECITABINE [Suspect]
     Indication: GASTRIC CANCER
     Route: 048
  5. BISOPROLOL [Concomitant]
  6. LANSOPRAZOLE [Concomitant]
  7. PERINDOPRIL [Concomitant]

REACTIONS (10)
  - Chest pain [None]
  - Pyrexia [None]
  - Tachycardia [None]
  - Atrial fibrillation [None]
  - Pneumonitis [None]
  - Abdominal pain [None]
  - Sinus tachycardia [None]
  - White blood cell count increased [None]
  - Blood fibrinogen increased [None]
  - Blood urea increased [None]
